FAERS Safety Report 5910258-5 (Version None)
Quarter: 2008Q4

REPORT INFORMATION
  Report Type: 
  Country: None (occurrence: None)
  Receive Date: 20081007
  Receipt Date: 20071108
  Transmission Date: 20090506
  Serious: No
  Sender: FDA-Public Use
  Company Number: US-ASTRAZENECA-2007UW25999

PATIENT
  Age: 57 Year
  Sex: Female
  Weight: 79.4 kg

DRUGS (3)
  1. ARIMIDEX [Suspect]
     Indication: BREAST CANCER FEMALE
     Route: 048
     Dates: start: 20070922
  2. PRILOSEC [Concomitant]
  3. CALCIUM [Concomitant]

REACTIONS (8)
  - ARTHRALGIA [None]
  - BLADDER DISORDER [None]
  - BONE PAIN [None]
  - DYSSTASIA [None]
  - GAIT DISTURBANCE [None]
  - HOT FLUSH [None]
  - MUSCULOSKELETAL PAIN [None]
  - PAIN IN EXTREMITY [None]
